FAERS Safety Report 9362768 (Version 1)
Quarter: 2013Q2

REPORT INFORMATION
  Report Type: Report from Study
  Country: UZ (occurrence: UZ)
  Receive Date: 20130623
  Receipt Date: 20130623
  Transmission Date: 20140414
  Serious: Yes (Other)
  Sender: FDA-Public Use
  Company Number: PHHY2013UZ062849

PATIENT
  Age: 47 Year
  Sex: Male

DRUGS (3)
  1. GLIVEC [Suspect]
     Indication: CHRONIC MYELOID LEUKAEMIA
     Dosage: 600 MG, UNK
     Dates: end: 201203
  2. GLIVEC [Suspect]
     Dosage: 300 MG, UNK
  3. NSAID^S [Suspect]
     Indication: BACK PAIN

REACTIONS (5)
  - Pleurisy [Unknown]
  - Lumbar hernia [Not Recovered/Not Resolved]
  - Back pain [Not Recovered/Not Resolved]
  - Chronic myeloid leukaemia [Unknown]
  - Thrombocytopenia [Unknown]
